FAERS Safety Report 13587454 (Version 1)
Quarter: 2017Q2

REPORT INFORMATION
  Report Type: Spontaneous
  Country: US (occurrence: US)
  Receive Date: 20170526
  Receipt Date: 20170526
  Transmission Date: 20170830
  Serious: Yes (Other)
  Sender: FDA-Public Use
  Company Number: US-BAUSCH-BL-2017-008308

PATIENT
  Age: 63 Year
  Sex: Male
  Weight: 74.91 kg

DRUGS (3)
  1. ADVANCED EYE RELIEF/EYE WASH [Suspect]
     Active Substance: WATER
     Indication: EYE PRURITUS
     Route: 065
  2. ADVANCED EYE RELIEF/EYE WASH [Suspect]
     Active Substance: WATER
     Route: 047
     Dates: start: 20170329, end: 20170329
  3. ADVANCED EYE RELIEF/EYE WASH [Suspect]
     Active Substance: WATER
     Route: 047
     Dates: start: 201702

REACTIONS (3)
  - Ocular hyperaemia [Not Recovered/Not Resolved]
  - Blindness unilateral [Unknown]
  - Eye irritation [Not Recovered/Not Resolved]

NARRATIVE: CASE EVENT DATE: 201702
